FAERS Safety Report 20770833 (Version 2)
Quarter: 2022Q2

REPORT INFORMATION
  Report Type: Report from Study
  Country: DE (occurrence: DE)
  Receive Date: 20220429
  Receipt Date: 20220506
  Transmission Date: 20220721
  Serious: Yes (Other)
  Sender: FDA-Public Use
  Company Number: DE-TAKEDA-2022TUS028744

PATIENT
  Age: 59 Year
  Sex: Male
  Weight: 81 kg

DRUGS (2)
  1. VEDOLIZUMAB [Suspect]
     Active Substance: VEDOLIZUMAB
     Indication: Colitis ulcerative
     Dosage: 300 MILLIGRAM
     Route: 065
     Dates: start: 20211010, end: 20220414
  2. VEDOLIZUMAB [Suspect]
     Active Substance: VEDOLIZUMAB
     Indication: Crohn^s disease

REACTIONS (1)
  - Colitis ulcerative [Not Recovered/Not Resolved]

NARRATIVE: CASE EVENT DATE: 20220120
